FAERS Safety Report 8814852 (Version 1)
Quarter: 2012Q4

REPORT INFORMATION
  Report Type: 
  Country: SE (occurrence: SE)
  Receive Date: 20120928
  Receipt Date: 20120928
  Transmission Date: 20130627
  Serious: Yes (Hospitalization)
  Sender: FDA-Public Use
  Company Number: SE-PFIZER INC-2012236224

PATIENT
  Age: 54 Year
  Sex: Female
  Weight: 72 kg

DRUGS (14)
  1. GENOTROPIN [Suspect]
     Indication: GROWTH HORMONE DEFICIENCY
     Dosage: 0.7 mg, 7/wk
     Route: 058
     Dates: start: 20021128
  2. GESTAPURAN [Concomitant]
     Indication: BLOOD LUTEINISING HORMONE DECREASED
     Dosage: UNK
     Dates: start: 19840501
  3. GESTAPURAN [Concomitant]
     Indication: BLOOD FOLLICLE STIMULATING HORMONE DECREASED
  4. GESTAPURAN [Concomitant]
     Indication: HYPOGONADISM FEMALE
  5. ESTRADIOL [Concomitant]
     Indication: BLOOD LUTEINISING HORMONE DECREASED
     Dosage: UNK
     Dates: start: 19840501
  6. ESTRADIOL [Concomitant]
     Indication: BLOOD FOLLICLE STIMULATING HORMONE DECREASED
  7. ESTRADIOL [Concomitant]
     Indication: HYPOGONADISM FEMALE
  8. HYDROCORTISONE [Concomitant]
     Indication: BLOOD CORTICOTROPHIN DECREASED
     Dosage: UNK
     Dates: start: 20040201
  9. MINIRIN [Concomitant]
     Indication: BLOOD ANTIDIURETIC HORMONE DECREASED
     Dosage: UNK
     Dates: start: 19781201
  10. LEVAXIN [Concomitant]
     Indication: BLOOD THYROID STIMULATING HORMONE DECREASED
     Dosage: UNK
     Dates: start: 19781201
  11. LEVAXIN [Concomitant]
     Indication: PRIMARY HYPOGONADISM
  12. TEGRETOL RETARD [Concomitant]
     Indication: EPILEPSY
     Dosage: UNK
     Dates: start: 20040924
  13. TEGRETOL RETARD [Concomitant]
     Indication: CONVULSION
  14. TEGRETOL RETARD [Concomitant]
     Indication: CONVULSION

REACTIONS (1)
  - Muscle spasms [Unknown]
